FAERS Safety Report 4863141-0 (Version None)
Quarter: 2005Q4

REPORT INFORMATION
  Report Type: 
  Country: None (occurrence: None)
  Receive Date: 20051212
  Receipt Date: 20051205
  Transmission Date: 20060501
  Serious: Yes (Hospitalization, Other)
  Sender: FDA-Public Use
  Company Number: 2005-02025

PATIENT
  Age: 20 Year
  Sex: Female
  Weight: 81 kg

DRUGS (2)
  1. TUBERSOL [Suspect]
     Indication: TUBERCULIN TEST
     Dosage: (0.1 ML), I.D.
     Dates: start: 20051006
  2. CORTISONE ACETATE TAB [Suspect]

REACTIONS (7)
  - ASTHENIA [None]
  - BLOOD UREA DECREASED [None]
  - BLOOD UREA NITROGEN/CREATININE RATIO DECREASED [None]
  - FATIGUE [None]
  - HYPERSENSITIVITY [None]
  - PAIN IN EXTREMITY [None]
  - PLATELET COUNT INCREASED [None]
